FAERS Safety Report 6563731-3 (Version None)
Quarter: 2010Q1

REPORT INFORMATION
  Report Type: 
  Country: None (occurrence: None)
  Receive Date: 20100130
  Receipt Date: 20091224
  Transmission Date: 20100710
  Serious: Yes (Other)
  Sender: FDA-Public Use
  Company Number: US-ABBOTT-09P-163-0616410-00

PATIENT
  Sex: Male
  Weight: 111.23 kg

DRUGS (2)
  1. HUMIRA [Suspect]
     Indication: PSORIASIS
     Route: 058
     Dates: start: 20080414, end: 20090701
  2. HUMIRA [Suspect]
     Route: 058
     Dates: end: 20091209

REACTIONS (6)
  - COUGH [None]
  - HYPOTHYROIDISM [None]
  - PARANASAL SINUS DISCOMFORT [None]
  - PYREXIA [None]
  - TUBERCULOSIS [None]
  - WEIGHT DECREASED [None]
